FAERS Safety Report 14813126 (Version 1)
Quarter: 2018Q2

REPORT INFORMATION
  Report Type: Spontaneous
  Country: FR (occurrence: FR)
  Receive Date: 20180426
  Receipt Date: 20180426
  Transmission Date: 20180711
  Serious: Yes (Other)
  Sender: FDA-Public Use
  Company Number: FR-MERCK KGAA-2046557

PATIENT
  Age: 76 Year
  Sex: Female

DRUGS (1)
  1. NOVOTHYROX [Suspect]
     Active Substance: LEVOTHYROXINE SODIUM
     Indication: PRODUCT USED FOR UNKNOWN INDICATION

REACTIONS (20)
  - Decreased activity [None]
  - Somnolence [Recovered/Resolved]
  - Musculoskeletal pain [Recovering/Resolving]
  - Social avoidant behaviour [None]
  - Blood thyroid stimulating hormone decreased [Not Recovered/Not Resolved]
  - Myalgia [Recovering/Resolving]
  - Mobility decreased [None]
  - Blood pressure abnormal [None]
  - Pain [None]
  - Fatigue [None]
  - Arthralgia [Recovered/Resolved]
  - Anxiety [None]
  - Gait disturbance [Recovering/Resolving]
  - Decreased interest [None]
  - Apathy [None]
  - Hypertension [None]
  - Chest pain [None]
  - Insomnia [Recovering/Resolving]
  - Blood pressure systolic increased [Recovering/Resolving]
  - Back pain [None]

NARRATIVE: CASE EVENT DATE: 20170112
